FAERS Safety Report 12605926 (Version 2)
Quarter: 2016Q3

REPORT INFORMATION
  Report Type: Spontaneous
  Country: GB (occurrence: GB)
  Receive Date: 20160729
  Receipt Date: 20160810
  Transmission Date: 20161109
  Serious: Yes (Other)
  Sender: FDA-Public Use
  Company Number: GB-AUROBINDO-AUR-APL-2016-09573

PATIENT
  Age: 16 Year
  Sex: Female

DRUGS (12)
  1. PAROXETINE TABLET [Suspect]
     Active Substance: PAROXETINE
     Dosage: 10 MG, UNK
     Route: 065
  2. PAXIL [Suspect]
     Active Substance: PAROXETINE HYDROCHLORIDE
     Indication: PRODUCT USED FOR UNKNOWN INDICATION
     Dosage: 20 MG,
     Route: 065
     Dates: start: 19990122
  3. ROACCUTANE [Concomitant]
     Active Substance: ISOTRETINOIN
     Indication: ACNE
     Dosage: UNK
     Route: 065
     Dates: start: 199705
  4. DIAZEPAM. [Concomitant]
     Active Substance: DIAZEPAM
     Indication: PRODUCT USED FOR UNKNOWN INDICATION
     Dosage: UNK
     Route: 065
     Dates: start: 20040929
  5. PAROXETINE TABLET [Suspect]
     Active Substance: PAROXETINE
     Indication: PRODUCT USED FOR UNKNOWN INDICATION
     Dosage: UNK
     Route: 065
     Dates: start: 19990122
  6. ESTROGENS, CONJUGATED AND MEDROXYPROGESTERONE ACETATE [Concomitant]
     Active Substance: ESTROGENS, CONJUGATED\MEDROXYPROGESTERONE ACETATE
     Indication: PRODUCT USED FOR UNKNOWN INDICATION
     Dosage: UNK
     Route: 065
  7. PAROXETINE TABLET [Suspect]
     Active Substance: PAROXETINE
     Dosage: 20 MG, UNK
     Route: 065
     Dates: start: 19990122
  8. PAXIL [Suspect]
     Active Substance: PAROXETINE HYDROCHLORIDE
     Dosage: 10 MG,
     Route: 065
  9. PAROXETINE. [Suspect]
     Active Substance: PAROXETINE
     Dosage: UNK
     Route: 065
  10. SERTRALINE [Concomitant]
     Active Substance: SERTRALINE HYDROCHLORIDE
     Indication: PRODUCT USED FOR UNKNOWN INDICATION
     Dosage: UNK
     Route: 065
     Dates: start: 20031126
  11. PAROXETINE. [Suspect]
     Active Substance: PAROXETINE
     Indication: PRODUCT USED FOR UNKNOWN INDICATION
     Dosage: UNK
     Route: 065
     Dates: start: 19990122
  12. LUPRON DEPOT [Concomitant]
     Active Substance: LEUPROLIDE ACETATE
     Indication: PRODUCT USED FOR UNKNOWN INDICATION
     Dosage: UNK
     Route: 065

REACTIONS (11)
  - Hyperhidrosis [Unknown]
  - Suicidal ideation [Unknown]
  - Vision blurred [Unknown]
  - Anxiety [Unknown]
  - Depressed mood [Unknown]
  - Dizziness [Unknown]
  - Nightmare [Unknown]
  - Sleep disorder [Unknown]
  - Drug withdrawal syndrome [Unknown]
  - Aggression [Unknown]
  - Weight decreased [Unknown]

NARRATIVE: CASE EVENT DATE: 19990521
